FAERS Safety Report 11206231 (Version 1)
Quarter: 2015Q2

REPORT INFORMATION
  Report Type: Spontaneous
  Country: US (occurrence: US)
  Receive Date: 20150622
  Receipt Date: 20150622
  Transmission Date: 20150821
  Serious: No
  Sender: FDA-Public Use
  Company Number: US-ROXANE LABORATORIES, INC.-2015-RO-01033RO

PATIENT
  Sex: Male

DRUGS (1)
  1. DEXAMETHASONE. [Suspect]
     Active Substance: DEXAMETHASONE
     Indication: ABDOMINAL PAIN UPPER
     Route: 048
     Dates: end: 201506

REACTIONS (3)
  - Weight increased [Unknown]
  - Vision blurred [Not Recovered/Not Resolved]
  - Increased appetite [Unknown]
